FAERS Safety Report 5181415-3 (Version None)
Quarter: 2006Q4

REPORT INFORMATION
  Report Type: 
  Country: None (occurrence: None)
  Receive Date: 20061220
  Receipt Date: 20060110
  Transmission Date: 20070319
  Serious: Yes (Other)
  Sender: FDA-Public Use
  Company Number: US-GLAXOSMITHKLINE-A0588502A

PATIENT
  Age: 40 Year
  Sex: Male

DRUGS (3)
  1. COMMIT [Suspect]
     Dosage: 4MG EIGHT TIMES PER DAY
  2. NICODERM CQ [Suspect]
     Dosage: 21MG UNKNOWN
  3. NICORETTE [Suspect]
     Dosage: 4MG UNKNOWN

REACTIONS (6)
  - DRUG ABUSER [None]
  - DRUG ADMINISTRATION ERROR [None]
  - DRUG INEFFECTIVE [None]
  - DYSPEPSIA [None]
  - STOMACH DISCOMFORT [None]
  - TENSION [None]
